FAERS Safety Report 18028190 (Version 1)
Quarter: 2020Q3

REPORT INFORMATION
  Report Type: Spontaneous
  Country: US (occurrence: US)
  Receive Date: 20200716
  Receipt Date: 20200716
  Transmission Date: 20201103
  Serious: Yes (Other)
  Sender: FDA-Public Use
  Company Number: US-ADVANZ PHARMA-202007007150

PATIENT

DRUGS (2)
  1. PILOCARPINE. [Suspect]
     Active Substance: PILOCARPINE
     Indication: INTRAOCULAR PRESSURE INCREASED
     Dosage: SEVERAL DOSES (CONCENTRATION UNKNOWN)
     Route: 061
  2. MANNITOL. [Concomitant]
     Active Substance: MANNITOL
     Dosage: 50 G OF 20%
     Route: 042

REACTIONS (1)
  - Ciliary body disorder [Recovered/Resolved]
